FAERS Safety Report 6876883-2 (Version None)
Quarter: 2010Q2

REPORT INFORMATION
  Report Type: 
  Country: None (occurrence: None)
  Receive Date: 20100616
  Receipt Date: 20100420
  Transmission Date: 20101027
  Serious: No
  Sender: FDA-Public Use
  Company Number: DSA_43004_2010

PATIENT
  Sex: Male

DRUGS (5)
  1. XENAZINE [Suspect]
     Indication: CHOREA
     Dosage: (87.5 MG ORAL), (DF ORAL)
     Route: 048
     Dates: start: 20090520, end: 20091001
  2. XENAZINE [Suspect]
     Indication: CONVULSION
     Dosage: (87.5 MG ORAL), (DF ORAL)
     Route: 048
     Dates: start: 20090520, end: 20091001
  3. XENAZINE [Suspect]
     Indication: CHOREA
     Dosage: (87.5 MG ORAL), (DF ORAL)
     Route: 048
     Dates: start: 20091001, end: 20100416
  4. XENAZINE [Suspect]
     Indication: CONVULSION
     Dosage: (87.5 MG ORAL), (DF ORAL)
     Route: 048
     Dates: start: 20091001, end: 20100416
  5. ACTHAR/00005503/ [Concomitant]

REACTIONS (2)
  - DRUG ADMINISTRATION ERROR [None]
  - THERAPEUTIC RESPONSE UNEXPECTED [None]
